FAERS Safety Report 5891066-0 (Version None)
Quarter: 2008Q3

REPORT INFORMATION
  Report Type: 
  Country: None (occurrence: None)
  Receive Date: 20080922
  Receipt Date: 20080912
  Transmission Date: 20090109
  Serious: Yes (Hospitalization, Other)
  Sender: FDA-Public Use
  Company Number: PHEH2008US04736

PATIENT
  Sex: Female
  Weight: 56.689 kg

DRUGS (9)
  1. RECLAST [Suspect]
     Indication: OSTEOPENIA
     Dosage: 5 MG, ONCE/SINGLE
     Dates: start: 20080519
  2. VITAMIN E [Concomitant]
  3. CALCIUM WITH VITAMIN D [Concomitant]
     Dosage: UNK
  4. MAGNESIUM SULFATE [Concomitant]
     Dosage: 40 MG, QD
  5. MULTIVITAMINS PLUS IRON [Concomitant]
     Dosage: UNK
  6. BENICAR [Concomitant]
     Dosage: 20 MG, QD
  7. PROTONIX [Concomitant]
     Dosage: 4 MG, QD
  8. AMITIZA [Concomitant]
     Dosage: 25 UG, PRN
  9. FIORINAL [Concomitant]
     Indication: HEADACHE
     Dosage: UNK

REACTIONS (10)
  - ACUTE PHASE REACTION [None]
  - BLOOD PRESSURE DECREASED [None]
  - CEREBRAL ARTERY OCCLUSION [None]
  - CEREBRAL ARTERY THROMBOSIS [None]
  - CEREBROVASCULAR ACCIDENT [None]
  - CONSTIPATION [None]
  - FATIGUE [None]
  - HEADACHE [None]
  - HEMIPARESIS [None]
  - ISCHAEMIC CEREBRAL INFARCTION [None]
